FAERS Safety Report 16467146 (Version 1)
Quarter: 2019Q2

REPORT INFORMATION
  Report Type: Spontaneous
  Country: GB (occurrence: GB)
  Receive Date: 20190624
  Receipt Date: 20190624
  Transmission Date: 20190711
  Serious: Yes (Life-Threatening)
  Sender: FDA-Public Use
  Company Number: GB-ACCORD-134634

PATIENT
  Age: 66 Year
  Sex: Female
  Weight: 73.02 kg

DRUGS (11)
  1. LEVOTHYROXINE. [Concomitant]
     Active Substance: LEVOTHYROXINE
  2. RAMIPRIL. [Suspect]
     Active Substance: RAMIPRIL
     Indication: CARDIAC FAILURE
     Route: 048
     Dates: start: 20180215, end: 20190425
  3. ENTRESTO [Interacting]
     Active Substance: SACUBITRIL\VALSARTAN
     Indication: CARDIAC FAILURE
     Dosage: 24/26MGS
     Route: 048
     Dates: start: 20190222
  4. FUROSEMIDE. [Concomitant]
     Active Substance: FUROSEMIDE
  5. SENNA ALEXANDRINA [Concomitant]
     Active Substance: SENNA LEAF
  6. ATORVASTATIN [Concomitant]
     Active Substance: ATORVASTATIN
  7. RANITIDINE. [Concomitant]
     Active Substance: RANITIDINE
  8. BISOPROLOL [Concomitant]
     Active Substance: BISOPROLOL
  9. ZOLPIDEM [Concomitant]
     Active Substance: ZOLPIDEM\ZOLPIDEM TARTRATE
  10. SPIRONOLACTONE. [Concomitant]
     Active Substance: SPIRONOLACTONE
  11. WARFARIN [Concomitant]
     Active Substance: WARFARIN

REACTIONS (3)
  - Fatigue [Recovered/Resolved]
  - Cough [Recovered/Resolved]
  - Labelled drug-drug interaction medication error [Unknown]

NARRATIVE: CASE EVENT DATE: 20190317
